FAERS Safety Report 14280136 (Version 1)
Quarter: 2017Q4

REPORT INFORMATION
  Report Type: Report from Study
  Country: SA (occurrence: SA)
  Receive Date: 20171213
  Receipt Date: 20171213
  Transmission Date: 20180321
  Serious: Yes (Other)
  Sender: FDA-Public Use
  Company Number: SA-AXELLIA-001217

PATIENT
  Age: 8 Year
  Sex: Male
  Weight: 20.7 kg

DRUGS (3)
  1. PIPERACILLIN/TAZOBACTAM [Interacting]
     Active Substance: PIPERACILLIN SODIUM\TAZOBACTAM SODIUM
     Indication: FEBRILE NEUTROPENIA
     Dosage: 400 MG/KG/DAY
  2. VANCOMYCIN [Suspect]
     Active Substance: VANCOMYCIN
     Indication: MUCOSAL INFLAMMATION
     Dosage: 60 MG/KG/DAY
  3. GENTAMICIN. [Suspect]
     Active Substance: GENTAMICIN
     Indication: FEBRILE NEUTROPENIA
     Dosage: 7.5 MG/KG/DAY

REACTIONS (2)
  - Acute kidney injury [Recovered/Resolved]
  - Drug interaction [Unknown]
